FAERS Safety Report 6600037-8 (Version None)
Quarter: 2010Q1

REPORT INFORMATION
  Report Type: 
  Country: None (occurrence: None)
  Receive Date: 20100217
  Receipt Date: 20100205
  Transmission Date: 20100710
  Serious: Yes (Hospitalization)
  Sender: FDA-Public Use
  Company Number: 2010AC000116

PATIENT
  Age: 76 Year
  Sex: Male
  Weight: 71.6683 kg

DRUGS (1)
  1. DIGOXIN [Suspect]
     Dosage: .125 MG; PO
     Route: 048
     Dates: end: 20080201

REACTIONS (7)
  - ASTHENIA [None]
  - BLOOD PRESSURE DECREASED [None]
  - DIZZINESS [None]
  - FALL [None]
  - HEART RATE DECREASED [None]
  - PALLOR [None]
  - SYNCOPE [None]
